FAERS Safety Report 9550569 (Version 1)
Quarter: 2013Q3

REPORT INFORMATION
  Report Type: Spontaneous
  Country: US (occurrence: US)
  Receive Date: 20130924
  Receipt Date: 20130924
  Transmission Date: 20140515
  Serious: No
  Sender: FDA-Public Use
  Company Number: US-SANOFI-AVENTIS-2013SA035943

PATIENT
  Age: 52 Year
  Sex: Female

DRUGS (1)
  1. AUBAGIO [Suspect]
     Indication: MULTIPLE SCLEROSIS
     Route: 048
     Dates: start: 20130314

REACTIONS (10)
  - Vomiting [Unknown]
  - Retching [Unknown]
  - Faeces pale [Unknown]
  - Fatigue [Unknown]
  - Feeling of body temperature change [Unknown]
  - Peripheral coldness [Unknown]
  - Dry skin [Unknown]
  - Paraesthesia [Unknown]
  - Nausea [Recovering/Resolving]
  - Alopecia [Unknown]
